FAERS Safety Report 4483940-7 (Version None)
Quarter: 2004Q4

REPORT INFORMATION
  Report Type: 
  Country: None (occurrence: None)
  Receive Date: 20041025
  Receipt Date: 20001201
  Transmission Date: 20050328
  Serious: Yes (Hospitalization)
  Sender: FDA-Public Use
  Company Number: JP-BRISTOL-MYERS SQUIBB COMPANY-10629574

PATIENT
  Age: 37 Year
  Sex: Male

DRUGS (28)
  1. ZERIT [Suspect]
     Indication: ACQUIRED IMMUNODEFICIENCY SYNDROME
     Dosage: 8/29/95-12/9/96, 10/26/98-10/31/98, 60 MG 11/1/98-11/9/99, 80 MG 11/10/99-10/21/02
     Route: 048
     Dates: start: 19950829, end: 20021021
  2. VIDEX [Suspect]
     Indication: ACQUIRED IMMUNODEFICIENCY SYNDROME
     Dosage: 9/21/93-2/14/94, 10/26/97-10/31/97, 11/1/97-4/23/01
     Route: 048
     Dates: start: 19930921, end: 20010423
  3. VIDEX EC [Suspect]
     Indication: ACQUIRED IMMUNODEFICIENCY SYNDROME
     Route: 048
     Dates: start: 20010424, end: 20021028
  4. DESYREL [Suspect]
     Dosage: 100 MG 9/18/96-10/31/98, 50 MG 11/1/98-5/20/99
     Route: 048
     Dates: start: 19960918, end: 19990520
  5. INVIRASE [Suspect]
     Indication: ACQUIRED IMMUNODEFICIENCY SYNDROME
     Dosage: 10/21/98-10/31/98, 11/1/98-10/28/02
     Route: 048
     Dates: start: 19981021, end: 20021028
  6. NORVIR [Suspect]
     Indication: ACQUIRED IMMUNODEFICIENCY SYNDROME
     Dosage: 10/21/98-10/31/98, 11/1/98-9/28/99, 9/29/99-10/28/02.
     Route: 048
     Dates: start: 19981021, end: 20021028
  7. ZIAGEN [Suspect]
     Indication: ACQUIRED IMMUNODEFICIENCY SYNDROME
     Route: 048
     Dates: start: 20021022, end: 20021028
  8. REBETOL [Suspect]
     Route: 048
     Dates: start: 20020805, end: 20021028
  9. PEGINTERFERON ALFA-2B [Suspect]
     Dates: start: 20020805, end: 20021028
  10. VIRACEPT [Concomitant]
     Indication: ACQUIRED IMMUNODEFICIENCY SYNDROME
     Route: 048
     Dates: start: 19961210, end: 19991020
  11. RETROVIR [Concomitant]
     Indication: ACQUIRED IMMUNODEFICIENCY SYNDROME
     Dosage: 400MG GIVEN 01 NOV 91-14 FEB 1994,300MG GIVEN 15 FEB 94-16 AUG 94 AND 13 SEP 94-01 AUG 95.
     Route: 048
     Dates: start: 19911101, end: 19971020
  12. HIVID [Concomitant]
     Indication: ACQUIRED IMMUNODEFICIENCY SYNDROME
     Route: 048
     Dates: start: 19961210, end: 19981020
  13. PONTAL [Concomitant]
     Route: 048
     Dates: start: 19960918, end: 20021028
  14. POLAPREZINC [Concomitant]
     Route: 048
     Dates: start: 19981013
  15. MARZULENE-S [Concomitant]
     Route: 048
     Dates: start: 19960722
  16. GANATON [Concomitant]
     Route: 048
     Dates: start: 19981209
  17. PRIMPERAN INJ [Concomitant]
     Dosage: DOSE = 1000 UNITS/DAY
     Route: 042
     Dates: start: 19990508, end: 19990607
  18. FLAVINE ADENINE DINUCLEOTIDE [Concomitant]
     Route: 042
     Dates: start: 19981101, end: 19981115
  19. NEO-MINOPHAGEN C [Concomitant]
     Route: 042
     Dates: start: 19990430, end: 20000331
  20. LENDORMIN [Concomitant]
     Route: 048
     Dates: start: 19980630
  21. LOXONIN [Concomitant]
     Route: 048
     Dates: start: 20021224, end: 20030107
  22. LANSOPRAZOLE [Concomitant]
     Route: 048
     Dates: start: 20020924, end: 20021028
  23. PARIET [Concomitant]
     Route: 048
     Dates: start: 20020821, end: 20020923
  24. PURSENNIDE [Concomitant]
     Dosage: INTERRUPTED 10/28/02, RESTARTED 12/24/02.
     Route: 048
     Dates: start: 19981209
  25. NAUZELIN [Concomitant]
     Route: 048
     Dates: start: 19960918, end: 19981208
  26. PANTOSIN [Concomitant]
     Route: 048
     Dates: start: 19980217, end: 19981208
  27. CYANOCOBALAMIN [Concomitant]
     Route: 048
     Dates: start: 19981101, end: 19981115
  28. CROSS EIGHT M [Concomitant]
     Dosage: DOSAGE FORM = UNITS
     Route: 042
     Dates: start: 20010410

REACTIONS (10)
  - ALANINE AMINOTRANSFERASE INCREASED [None]
  - ASPARTATE AMINOTRANSFERASE INCREASED [None]
  - DISSEMINATED INTRAVASCULAR COAGULATION [None]
  - DYSGEUSIA [None]
  - HEPATIC FUNCTION ABNORMAL [None]
  - HYPERLACTACIDAEMIA [None]
  - MUSCLE HAEMORRHAGE [None]
  - NAUSEA [None]
  - PANCREATITIS ACUTE [None]
  - VOMITING [None]
